FAERS Safety Report 16834352 (Version 3)
Quarter: 2019Q4

REPORT INFORMATION
  Report Type: Report from Study
  Country: US (occurrence: US)
  Receive Date: 20190920
  Receipt Date: 20191023
  Transmission Date: 20200122
  Serious: Yes (Other)
  Sender: FDA-Public Use
  Company Number: PHEH2019US038808

PATIENT
  Age: 16 Year
  Sex: Female
  Weight: 113 kg

DRUGS (1)
  1. GILENYA [Suspect]
     Active Substance: FINGOLIMOD HYDROCHLORIDE
     Indication: RELAPSING-REMITTING MULTIPLE SCLEROSIS
     Dosage: 0.5 MG, QD
     Route: 048
     Dates: start: 20190917, end: 20190917

REACTIONS (1)
  - Bradycardia [Recovered/Resolved]

NARRATIVE: CASE EVENT DATE: 20190918
